FAERS Safety Report 4890119-3 (Version None)
Quarter: 2006Q1

REPORT INFORMATION
  Report Type: 
  Country: None (occurrence: None)
  Receive Date: 20060124
  Receipt Date: 20060113
  Transmission Date: 20060701
  Serious: Yes (Death, Hospitalization, Other)
  Sender: FDA-Public Use
  Company Number: US-ABBOTT-06P-163-0322439-00

PATIENT
  Age: 39 Year
  Sex: Male

DRUGS (2)
  1. VICODIN [Suspect]
     Indication: BACK PAIN
     Route: 048
  2. CARISOPRODOL [Suspect]
     Indication: BACK PAIN

REACTIONS (16)
  - AMMONIA INCREASED [None]
  - CARDIO-RESPIRATORY ARREST [None]
  - CONFUSIONAL STATE [None]
  - DEPRESSED LEVEL OF CONSCIOUSNESS [None]
  - DISSEMINATED INTRAVASCULAR COAGULATION [None]
  - HEPATOTOXICITY [None]
  - HYPERHIDROSIS [None]
  - HYPOGLYCAEMIA [None]
  - HYPOTENSION [None]
  - MULTI-ORGAN FAILURE [None]
  - NAUSEA [None]
  - OVERDOSE [None]
  - PANCREATITIS ACUTE [None]
  - TRANSAMINASES INCREASED [None]
  - TREMOR [None]
  - VOMITING [None]
